FAERS Safety Report 8948222 (Version 1)
Quarter: 2012Q4

REPORT INFORMATION
  Report Type: Spontaneous
  Country: US (occurrence: None)
  Receive Date: 20121203
  Receipt Date: 20121203
  Transmission Date: 20130627
  Serious: No
  Sender: FDA-Public Use
  Company Number: None

PATIENT
  Age: 25 Year
  Sex: Male
  Weight: 68.04 kg

DRUGS (2)
  1. METHYLPHENIDATE 20MG MALLINCKRODT [Suspect]
     Indication: ADHD
     Route: 048
     Dates: start: 20121101, end: 20121129
  2. METHYLPHENIDATE 20MG MALLINCKRODT [Suspect]
     Indication: AUTISM
     Route: 048
     Dates: start: 20121101, end: 20121129

REACTIONS (2)
  - Drug ineffective [None]
  - Therapeutic response unexpected with drug substitution [None]
